FAERS Safety Report 23597469 (Version 2)
Quarter: 2024Q2

REPORT INFORMATION
  Report Type: Report from Study
  Country: US (occurrence: None)
  Receive Date: 20240305
  Receipt Date: 20240405
  Transmission Date: 20240716
  Serious: Yes (Hospitalization, Other)
  Sender: FDA-Public Use
  Company Number: 2024A024812

PATIENT
  Age: 86 Year
  Sex: Female
  Weight: 82.1 kg

DRUGS (17)
  1. BRILINTA [Suspect]
     Active Substance: TICAGRELOR
     Indication: Stent placement
     Route: 048
     Dates: start: 20181105, end: 20230606
  2. BRILINTA [Suspect]
     Active Substance: TICAGRELOR
     Indication: Coronary artery disease
     Route: 048
     Dates: start: 20181105, end: 20230606
  3. BRILINTA [Suspect]
     Active Substance: TICAGRELOR
     Indication: Stent placement
     Route: 048
     Dates: start: 20230606
  4. BRILINTA [Suspect]
     Active Substance: TICAGRELOR
     Indication: Coronary artery disease
     Route: 048
     Dates: start: 20230606
  5. METOPROLOL TARTRATE [Suspect]
     Active Substance: METOPROLOL TARTRATE
     Route: 048
  6. BRILINTA [Concomitant]
     Active Substance: TICAGRELOR
     Indication: Stent placement
  7. BRILINTA [Concomitant]
     Active Substance: TICAGRELOR
     Indication: Myocardial infarction
  8. ACETAMINOPHEN [Concomitant]
     Active Substance: ACETAMINOPHEN
     Dosage: 650 MG, EVERY 4 HOURS AS REQUIRES
     Route: 048
  9. ACYCLOVIR [Concomitant]
     Active Substance: ACYCLOVIR
     Route: 048
  10. ASPIRIN [Concomitant]
     Active Substance: ASPIRIN
     Dosage: 81 MG1 TABS,HS (AT BEDTIME)
     Route: 048
  11. CHOLECALCIFEROL [Concomitant]
     Active Substance: CHOLECALCIFEROL
     Dosage: 2000 INTI UNITS 50 MCG 1 CAPS, ORAL, DAILY
     Route: 048
  12. LOSARTAN [Concomitant]
     Active Substance: LOSARTAN
     Dosage: 75 MG= 3 TABS, DAILY, 3 REFILLS
     Route: 048
  13. LOVASTATIN [Concomitant]
     Active Substance: LOVASTATIN
     Dosage: 1 TABS, HS (AT BEDTIME)
     Route: 048
  14. MELATONIN [Concomitant]
     Active Substance: MELATONIN
     Dosage: 3 MG= 1 TABS, ORAL, HS
     Route: 048
  15. METOPROLOL TARTRATE [Concomitant]
     Active Substance: METOPROLOL TARTRATE
     Route: 048
  16. VITAMINS [Concomitant]
     Active Substance: VITAMINS
     Route: 048
  17. NITROGLYCERIN [Concomitant]
     Active Substance: NITROGLYCERIN
     Dosage: 1.0DF AS REQUIRED
     Route: 060

REACTIONS (16)
  - Ventricular tachycardia [Unknown]
  - Atrioventricular block [Recovered/Resolved with Sequelae]
  - Post procedural haematoma [Not Recovered/Not Resolved]
  - Vascular pseudoaneurysm [Recovered/Resolved]
  - Vascular compression [Recovered/Resolved]
  - Medical device site haemorrhage [Unknown]
  - Product use issue [Unknown]
  - Swelling [Not Recovered/Not Resolved]
  - Oedema peripheral [Unknown]
  - Dyspnoea [Unknown]
  - Chest discomfort [Unknown]
  - Contusion [Unknown]
  - Dry skin [Unknown]
  - Skin discolouration [Unknown]
  - Peripheral coldness [Unknown]
  - Pain in extremity [Unknown]

NARRATIVE: CASE EVENT DATE: 20230506
